FAERS Safety Report 5536223-8 (Version None)
Quarter: 2007Q4

REPORT INFORMATION
  Report Type: 
  Country: None (occurrence: None)
  Receive Date: 20071206
  Receipt Date: 20071126
  Transmission Date: 20080405
  Serious: Yes (Other)
  Sender: FDA-Public Use
  Company Number: IT-ABBOTT-07P-083-0426198-00

PATIENT
  Age: 49 Year
  Sex: Male

DRUGS (8)
  1. RITONAVIR [Suspect]
     Indication: HIV INFECTION
  2. RITONAVIR [Suspect]
     Indication: ACQUIRED IMMUNODEFICIENCY SYNDROME
  3. PHENOBARBITAL TAB [Interacting]
     Indication: EPILEPSY
  4. PHENOBARBITAL TAB [Interacting]
  5. TIPRANAVIR [Interacting]
     Indication: HIV INFECTION
  6. ABACAVIR [Concomitant]
     Indication: HIV INFECTION
     Dosage: NOT REPORTED
  7. DIDANOSINE [Concomitant]
     Indication: HIV INFECTION
     Dosage: NOT REPORTED
  8. ENFUVIRTIDE [Concomitant]
     Indication: HIV INFECTION
     Dosage: NOT REPORTED

REACTIONS (4)
  - ANTICONVULSANT DRUG LEVEL DECREASED [None]
  - CONVULSION [None]
  - DRUG INTERACTION [None]
  - DRUG LEVEL DECREASED [None]
